FAERS Safety Report 10631507 (Version 1)
Quarter: 2014Q4

REPORT INFORMATION
  Report Type: Spontaneous
  Country: GB (occurrence: None)
  Receive Date: 20141203
  Receipt Date: 20141203
  Transmission Date: 20150529
  Serious: Yes (Hospitalization, Disabling)
  Sender: FDA-Public Use
  Company Number: GB-DEXPHARM-20140953

PATIENT
  Age: 77 Year
  Sex: Female

DRUGS (10)
  1. PROCHLORPERAZINE. [Concomitant]
     Active Substance: PROCHLORPERAZINE
  2. LIPITOR [Concomitant]
     Active Substance: ATORVASTATIN CALCIUM
  3. RANITIDINE [Concomitant]
     Active Substance: RANITIDINE\RANITIDINE HYDROCHLORIDE
  4. TIMOLOL AND BIMATOPROST [Concomitant]
  5. PERINDOPRIL ARGININE [Concomitant]
     Active Substance: PERINDOPRIL ARGININE
  6. OMEPRAZOLE. [Suspect]
     Active Substance: OMEPRAZOLE
     Route: 048
  7. SERTRALINE [Suspect]
     Active Substance: SERTRALINE HYDROCHLORIDE
     Dosage: 1 IN 1 DAYS CUMULATIVE DOSE 50.0 MG
     Route: 048
     Dates: start: 20141029
  8. INDAPAMIDE. [Suspect]
     Active Substance: INDAPAMIDE
     Dosage: 1 IN 1 DAYS
     Route: 048
  9. BRINZOLMIDE [Concomitant]
  10. PARACETAMOL [Concomitant]
     Active Substance: ACETAMINOPHEN

REACTIONS (8)
  - Screaming [None]
  - Hyponatraemia [None]
  - Somnolence [None]
  - Hypotonia [None]
  - Hypokalaemia [None]
  - Muscle rigidity [None]
  - Confusional state [None]
  - Seizure [None]

NARRATIVE: CASE EVENT DATE: 20141029
